FAERS Safety Report 18575205 (Version 1)
Quarter: 2020Q4

REPORT INFORMATION
  Report Type: Spontaneous
  Country: US (occurrence: US)
  Receive Date: 20201203
  Receipt Date: 20201203
  Transmission Date: 20210114
  Serious: No
  Sender: FDA-Public Use
  Company Number: US-PFIZER INC-2020116711

PATIENT
  Age: 53 Year
  Sex: Female

DRUGS (2)
  1. SKELAXIN [Suspect]
     Active Substance: METAXALONE
     Dosage: 800 MG, 2X/DAY (TAKE 1 TABLET(S) EVERY 12 HOURS BY ORAL ROUTE FOR 15 DAYS)
     Route: 048
  2. SKELAXIN [Suspect]
     Active Substance: METAXALONE
     Indication: RADICULOPATHY
     Dosage: 800 MG, EVERY 8 HOURS

REACTIONS (2)
  - Product prescribing error [Unknown]
  - Dyslexia [Unknown]
